FAERS Safety Report 5377328-4 (Version None)
Quarter: 2007Q3

REPORT INFORMATION
  Report Type: 
  Country: None (occurrence: None)
  Receive Date: 20070703
  Receipt Date: 20070626
  Transmission Date: 20080115
  Serious: Yes (Death, Hospitalization)
  Sender: FDA-Public Use
  Company Number: US-SANOFI-SYNTHELABO-A03200704287

PATIENT
  Age: 67 Year
  Sex: Male

DRUGS (9)
  1. CLOPIDOGREL [Suspect]
     Indication: STENT PLACEMENT
     Route: 048
  2. CLOPIDOGREL [Suspect]
     Route: 048
  3. BIVALIRUDIN [Concomitant]
     Dosage: UNK
     Route: 065
  4. SPIRONOLACTONE [Concomitant]
     Route: 048
  5. METOPROLOL TARTRATE [Concomitant]
     Route: 048
  6. LOSARTAN POTASSIUM [Concomitant]
     Route: 048
  7. ATORVASTATIN [Concomitant]
     Route: 048
  8. AMLODIPINE [Concomitant]
     Route: 048
  9. ASPIRIN [Suspect]
     Indication: STENT PLACEMENT
     Route: 048

REACTIONS (9)
  - ACUTE PULMONARY OEDEMA [None]
  - CARDIAC ENZYMES INCREASED [None]
  - DRUG RESISTANCE [None]
  - DYSPNOEA [None]
  - ECHOCARDIOGRAM ABNORMAL [None]
  - MYOCARDIAL INFARCTION [None]
  - OVERDOSE [None]
  - RALES [None]
  - THROMBOSIS IN DEVICE [None]
